FAERS Safety Report 11875166 (Version 1)
Quarter: 2015Q4

REPORT INFORMATION
  Report Type: Spontaneous
  Country: US (occurrence: None)
  Receive Date: 20151228
  Receipt Date: 20151228
  Transmission Date: 20160305
  Serious: Yes (Disabling)
  Sender: FDA-Public Use
  Company Number: None

PATIENT
  Age: 66 Year
  Sex: Male
  Weight: 96.16 kg

DRUGS (28)
  1. CLOTRIMAZOLE. [Concomitant]
     Active Substance: CLOTRIMAZOLE
  2. DILTIAZEM (EQV-TIAZAC) [Concomitant]
  3. CLONAZEPAM. [Concomitant]
     Active Substance: CLONAZEPAM
  4. SILDENAFIL CITRATE. [Concomitant]
     Active Substance: SILDENAFIL CITRATE
  5. CETIRIZINE HCL [Concomitant]
     Active Substance: CETIRIZINE HYDROCHLORIDE
  6. ACETAMINOPHEN. [Concomitant]
     Active Substance: ACETAMINOPHEN
  7. DABIGATRAN ETEXILATE [Concomitant]
     Active Substance: DABIGATRAN ETEXILATE
  8. CYANOCOBALAMIN. [Concomitant]
     Active Substance: CYANOCOBALAMIN
  9. FISH OIL [Concomitant]
     Active Substance: FISH OIL
  10. SODIUM CHLORIDE. [Concomitant]
     Active Substance: SODIUM CHLORIDE
  11. FLUTICASONE PROP [Concomitant]
  12. ASPIRIN. [Concomitant]
     Active Substance: ASPIRIN
  13. DESONIDE. [Concomitant]
     Active Substance: DESONIDE
  14. KETOCONAZOLE 2% [Concomitant]
     Active Substance: KETOCONAZOLE
  15. SODIUM FLUORIDE. [Concomitant]
     Active Substance: SODIUM FLUORIDE
  16. CHLORHEXIDINE GLUC [Concomitant]
  17. ROSUVASTATIN [Concomitant]
     Active Substance: ROSUVASTATIN
  18. PETROLATUM. [Concomitant]
     Active Substance: PETROLATUM
  19. ACETIC ACID. [Concomitant]
     Active Substance: ACETIC ACID
  20. TRIAMCINOLONE ACETONIDE. [Concomitant]
     Active Substance: TRIAMCINOLONE ACETONIDE
  21. ROSUVASTATIN CA 20 MG TAB [Suspect]
     Active Substance: ROSUVASTATIN CALCIUM
     Indication: BLOOD CHOLESTEROL ABNORMAL
     Dosage: 1/2 TABLET
     Dates: start: 20150814, end: 20151223
  22. ROPINIROLE HCL [Concomitant]
     Active Substance: ROPINIROLE HYDROCHLORIDE
  23. SELENIUM SULFIDE. [Concomitant]
     Active Substance: SELENIUM SULFIDE
  24. AMOXICILLIN 875/CLAV K 125MG [Concomitant]
  25. IRRIGATION DM/GUAIFENESN (ALC-F/SF) SYR [Concomitant]
  26. CLOBETASOL PROPIONATE. [Concomitant]
     Active Substance: CLOBETASOL PROPIONATE
  27. CODEINE [Concomitant]
     Active Substance: CODEINE
  28. ASPIRIN. [Concomitant]
     Active Substance: ASPIRIN

REACTIONS (1)
  - Psoriasis [None]

NARRATIVE: CASE EVENT DATE: 20151221
